FAERS Safety Report 9295711 (Version 1)
Quarter: 2013Q2

REPORT INFORMATION
  Report Type: Spontaneous
  Country: CA (occurrence: None)
  Receive Date: 20130514
  Receipt Date: 20130514
  Transmission Date: 20140414
  Serious: Yes (Other)
  Sender: FDA-Public Use
  Company Number: CA-1198113

PATIENT
  Sex: Female

DRUGS (1)
  1. VIGAMOX 0.5% OPHTHALMIC SOLUTION [Suspect]
     Route: 047

REACTIONS (7)
  - Dyspnoea [None]
  - Dysphagia [None]
  - Choking [None]
  - Abdominal discomfort [None]
  - Chest discomfort [None]
  - Vomiting [None]
  - Ocular hyperaemia [None]
